FAERS Safety Report 25811676 (Version 1)
Quarter: 2025Q3

REPORT INFORMATION
  Report Type: Report from Study
  Country: US (occurrence: US)
  Receive Date: 20250917
  Receipt Date: 20250917
  Transmission Date: 20251021
  Serious: No
  Sender: TAKEDA
  Company Number: US-TAKEDA-2025TUS018796

PATIENT
  Sex: Female
  Weight: 79 kg

DRUGS (31)
  1. HUMAN IMMUNOGLOBULIN G\HYALURONIDASE RECOMBINANT HUMAN [Suspect]
     Active Substance: HUMAN IMMUNOGLOBULIN G\HYALURONIDASE (HUMAN RECOMBINANT)
     Indication: IgG deficiency
     Dosage: 30 GRAM, Q3WEEKS
  2. HUMAN IMMUNOGLOBULIN G\HYALURONIDASE RECOMBINANT HUMAN [Suspect]
     Active Substance: HUMAN IMMUNOGLOBULIN G\HYALURONIDASE (HUMAN RECOMBINANT)
     Dosage: 30 GRAM, Q3WEEKS
  3. HUMAN IMMUNOGLOBULIN G\HYALURONIDASE RECOMBINANT HUMAN [Suspect]
     Active Substance: HUMAN IMMUNOGLOBULIN G\HYALURONIDASE (HUMAN RECOMBINANT)
     Dosage: 40 GRAM, Q3WEEKS
  4. EPINEPHRINE [Concomitant]
     Active Substance: EPINEPHRINE
  5. ACETAMINOPHEN [Concomitant]
     Active Substance: ACETAMINOPHEN
  6. SALINE [Concomitant]
     Active Substance: SODIUM CHLORIDE
  7. CELEBREX [Concomitant]
     Active Substance: CELECOXIB
  8. CLOBETASOL PROPIONATE [Concomitant]
     Active Substance: CLOBETASOL PROPIONATE
  9. LEVOTHYROXINE SODIUM [Concomitant]
     Active Substance: LEVOTHYROXINE SODIUM
  10. KETOCONAZOLE [Concomitant]
     Active Substance: KETOCONAZOLE
  11. ROSUVASTATIN CALCIUM [Concomitant]
     Active Substance: ROSUVASTATIN CALCIUM
  12. BETAMETHASONE DIPROPIONATE [Concomitant]
     Active Substance: BETAMETHASONE DIPROPIONATE
  13. METHOCARBAMOL [Concomitant]
     Active Substance: METHOCARBAMOL
  14. ZOLPIDEM TARTRATE [Concomitant]
     Active Substance: ZOLPIDEM TARTRATE
  15. CICLOPIROX [Concomitant]
     Active Substance: CICLOPIROX
  16. ONDANSETRON [Concomitant]
     Active Substance: ONDANSETRON
  17. ZOLMITRIPTAN [Concomitant]
     Active Substance: ZOLMITRIPTAN
  18. Quercetin Bios [Concomitant]
  19. LIDOCAINE [Concomitant]
     Active Substance: LIDOCAINE
  20. EPIPEN [Concomitant]
     Active Substance: EPINEPHRINE
  21. BIOTIN [Concomitant]
     Active Substance: BIOTIN
  22. ALPRAZOLAM [Concomitant]
     Active Substance: ALPRAZOLAM
  23. BUSPIRONE HCL [Concomitant]
     Active Substance: BUSPIRONE HYDROCHLORIDE
  24. DIPHENHYDRAMINE HYDROCHLORIDE [Concomitant]
     Active Substance: DIPHENHYDRAMINE HYDROCHLORIDE
  25. ESTRADIOL [Concomitant]
     Active Substance: ESTRADIOL
  26. BETAMETHASONE VALERATE [Concomitant]
     Active Substance: BETAMETHASONE VALERATE
  27. TRETINOIN [Concomitant]
     Active Substance: TRETINOIN
  28. Gabapentin basics [Concomitant]
  29. SODIUM CHLORIDE [Concomitant]
     Active Substance: SODIUM CHLORIDE
  30. SODIUM CHLORIDE [Concomitant]
     Active Substance: SODIUM CHLORIDE
  31. GABAPENTIN [Concomitant]
     Active Substance: GABAPENTIN

REACTIONS (7)
  - Product use issue [Unknown]
  - Antibody test abnormal [Unknown]
  - Incorrect drug administration rate [Unknown]
  - Impetigo [Recovered/Resolved]
  - Skin ulcer [Unknown]
  - Skin lesion [Unknown]
  - Dermatitis contact [Unknown]
